FAERS Safety Report 23063962 (Version 3)
Quarter: 2024Q2

REPORT INFORMATION
  Report Type: Spontaneous
  Country: US (occurrence: US)
  Receive Date: 20231013
  Receipt Date: 20240615
  Transmission Date: 20240716
  Serious: Yes (Hospitalization)
  Sender: FDA-Public Use
  Company Number: US-ABBVIE-5449384

PATIENT
  Age: 65 Year
  Sex: Male
  Weight: 83.46 kg

DRUGS (1)
  1. HUMIRA [Suspect]
     Active Substance: ADALIMUMAB
     Indication: Psoriasis
     Dosage: START DATE : 2018-2019?FORM STRENGTH: 40 MILLIGRAM
     Route: 058

REACTIONS (3)
  - Mental disorder [Not Recovered/Not Resolved]
  - Product storage error [Not Recovered/Not Resolved]
  - Burning sensation [Unknown]

NARRATIVE: CASE EVENT DATE: 20230901
